FAERS Safety Report 9605689 (Version 2)
Quarter: 2013Q4

REPORT INFORMATION
  Report Type: Spontaneous
  Country: IE (occurrence: IE)
  Receive Date: 20131008
  Receipt Date: 20131022
  Transmission Date: 20140711
  Serious: Yes (Other)
  Sender: FDA-Public Use
  Company Number: IE-009507513-1310IRL002944

PATIENT
  Age: 72 Year
  Sex: Male

DRUGS (2)
  1. DEXAMETHASONE [Suspect]
     Indication: SPINAL CORD COMPRESSION
     Dosage: 16 MG, UNK
     Route: 042
  2. METHOTREXATE [Suspect]
     Indication: RHEUMATOID ARTHRITIS
     Dosage: 12.5 MG, QW
     Route: 048

REACTIONS (2)
  - Necrotising fasciitis staphylococcal [Unknown]
  - Leg amputation [Unknown]
